FAERS Safety Report 15733903 (Version 1)
Quarter: 2018Q4

REPORT INFORMATION
  Report Type: Spontaneous
  Country: US (occurrence: US)
  Receive Date: 20181218
  Receipt Date: 20181218
  Transmission Date: 20190205
  Serious: No
  Sender: FDA-Public Use
  Company Number: US-PFIZER INC-2018512861

PATIENT
  Age: 13 Year
  Sex: Male

DRUGS (3)
  1. GENOTROPIN [Suspect]
     Active Substance: SOMATROPIN
     Dosage: 2.1 MG, DAILY
     Dates: start: 20180616
  2. GENOTROPIN [Suspect]
     Active Substance: SOMATROPIN
     Dosage: 2 MG, ALTERNATE DAY [7 DAYS A WEEK]
     Dates: start: 20180616
  3. GENOTROPIN [Suspect]
     Active Substance: SOMATROPIN
     Dosage: 2.2 MG, ALTERNATE DAY [7 DAYS A WEEK]
     Dates: start: 20180616

REACTIONS (6)
  - Mean cell haemoglobin decreased [Unknown]
  - Blood corticotrophin increased [Unknown]
  - Product prescribing error [Unknown]
  - Red cell distribution width increased [Unknown]
  - Mean cell volume decreased [Unknown]
  - Insulin-like growth factor increased [Unknown]

NARRATIVE: CASE EVENT DATE: 20181010
